FAERS Safety Report 4931236-9 (Version None)
Quarter: 2006Q1

REPORT INFORMATION
  Report Type: 
  Country: None (occurrence: None)
  Receive Date: 20060227
  Receipt Date: 20060216
  Transmission Date: 20060701
  Serious: Yes (Life-Threatening)
  Sender: FDA-Public Use
  Company Number: 2006S1000036

PATIENT
  Age: 5 Day
  Sex: Male

DRUGS (10)
  1. INOMAX [Suspect]
     Indication: LUNG DISORDER
     Dosage: 5 PPM; CONT
     Route: 055
     Dates: start: 20060209
  2. INOMAX [Suspect]
     Indication: PROPHYLAXIS
     Dosage: 5 PPM; CONT
     Route: 055
     Dates: start: 20060209
  3. CEFOTAXIME SODIUM [Concomitant]
  4. VANCOMYCIN [Concomitant]
  5. DOMPERIDONE (DOMPERIDONE) [Concomitant]
  6. TOBRAMYCIN [Concomitant]
  7. RANITIDINE [Concomitant]
  8. FENTANYL [Concomitant]
  9. INSULIN (INSULIN) [Concomitant]
  10. ERYTROCYTE [Concomitant]

REACTIONS (7)
  - DISSEMINATED INTRAVASCULAR COAGULATION [None]
  - KLEBSIELLA INFECTION [None]
  - PLATELET COUNT DECREASED [None]
  - PROTHROMBIN TIME PROLONGED [None]
  - SEPSIS NEONATAL [None]
  - SKIN DISCOLOURATION [None]
  - WHITE BLOOD CELL COUNT DECREASED [None]
